FAERS Safety Report 4855877-2 (Version None)
Quarter: 2005Q4

REPORT INFORMATION
  Report Type: 
  Country: None (occurrence: None)
  Receive Date: 20051216
  Receipt Date: 20051212
  Transmission Date: 20060501
  Serious: Yes (Life-Threatening)
  Sender: FDA-Public Use
  Company Number: 2005CG02051

PATIENT
  Age: 18 Year
  Sex: Female
  Weight: 112 kg

DRUGS (5)
  1. DIPRIVAN [Suspect]
     Indication: ANAESTHESIA
     Route: 042
     Dates: start: 20041027, end: 20041027
  2. FLAGYL [Suspect]
     Route: 042
     Dates: start: 20041027, end: 20041027
  3. FORENE [Suspect]
     Indication: ANAESTHESIA
     Route: 055
     Dates: start: 20041027, end: 20041027
  4. CEFAZOLIN [Suspect]
     Route: 042
     Dates: start: 20041027, end: 20041027
  5. NIMBEX [Suspect]
     Indication: ANAESTHESIA
     Route: 042
     Dates: start: 20041027, end: 20041027

REACTIONS (8)
  - CARDIAC ARREST [None]
  - HYPERTENSION [None]
  - HYPERTHERMIA [None]
  - MENINGITIS [None]
  - PARESIS [None]
  - PROCEDURAL COMPLICATION [None]
  - SUPERINFECTION [None]
  - TACHYCARDIA [None]
